FAERS Safety Report 13664222 (Version 2)
Quarter: 2017Q2

REPORT INFORMATION
  Report Type: Spontaneous
  Country: AU (occurrence: AU)
  Receive Date: 20170619
  Receipt Date: 20170623
  Transmission Date: 20170830
  Serious: Yes (Life-Threatening, Other)
  Sender: FDA-Public Use
  Company Number: AU-PFIZER INC-2017266431

PATIENT
  Age: 35 Year
  Sex: Female

DRUGS (2)
  1. CODEINE/IBUPROFEN [Suspect]
     Active Substance: CODEINE\IBUPROFEN
     Dosage: UNK (IBUPROFEN DOSE: YEARS^ DURATION)
  2. AMITRIPTYLINE [Concomitant]
     Active Substance: AMITRIPTYLINE
     Dosage: 50 MG, 1X/DAY (AT NIGHT)

REACTIONS (3)
  - Intentional product misuse [Unknown]
  - Hypokalaemia [Recovered/Resolved]
  - Renal tubular acidosis [Recovered/Resolved]
